FAERS Safety Report 7763040-0 (Version None)
Quarter: 2011Q3

REPORT INFORMATION
  Report Type: 
  Country: None (occurrence: None)
  Receive Date: 20110920
  Receipt Date: 20110915
  Transmission Date: 20111222
  Serious: Yes (Disabling, Other)
  Sender: FDA-Public Use
  Company Number: GB-TEVA-301133ISR

PATIENT
  Age: 9 Year
  Sex: Male
  Weight: 42 kg

DRUGS (3)
  1. CORTICOSTEROIDS [Suspect]
     Indication: PRODUCT USED FOR UNKNOWN INDICATION
  2. METHOTREXATE [Suspect]
     Indication: PRODUCT USED FOR UNKNOWN INDICATION
  3. ETANERCEPT [Suspect]
     Indication: PRODUCT USED FOR UNKNOWN INDICATION
     Route: 058
     Dates: start: 20080601, end: 20100901

REACTIONS (5)
  - SLEEP TERROR [None]
  - RASH MACULAR [None]
  - MOOD ALTERED [None]
  - URTICARIA [None]
  - NAUSEA [None]
